FAERS Safety Report 5293670-X (Version None)
Quarter: 2007Q2

REPORT INFORMATION
  Report Type: 
  Country: None (occurrence: None)
  Receive Date: 20070411
  Receipt Date: 20070402
  Transmission Date: 20071010
  Serious: Yes (Hospitalization)
  Sender: FDA-Public Use
  Company Number: DE-SHR-DE-2007-008791

PATIENT
  Age: 41 Year
  Sex: Male

DRUGS (1)
  1. BETASERON [Suspect]
     Indication: MULTIPLE SCLEROSIS
     Dosage: UNK, EVERY 2D
     Route: 058
     Dates: start: 20010301, end: 20070101

REACTIONS (2)
  - INFLUENZA LIKE ILLNESS [None]
  - MUSCLE SPASTICITY [None]
